FAERS Safety Report 24579719 (Version 3)
Quarter: 2025Q3

REPORT INFORMATION
  Report Type: Report from Study
  Country: US (occurrence: US)
  Receive Date: 20241105
  Receipt Date: 20250809
  Transmission Date: 20251021
  Serious: Yes (Other)
  Sender: ALEXION PHARMACEUTICALS
  Company Number: US-AstraZeneca-CH-00727309A

PATIENT
  Sex: Male
  Weight: 79.374 kg

DRUGS (1)
  1. FARXIGA [Suspect]
     Active Substance: DAPAGLIFLOZIN PROPANEDIOL

REACTIONS (5)
  - Cataract [Unknown]
  - Retinal haemorrhage [Unknown]
  - Blindness [Unknown]
  - Weight decreased [Unknown]
  - Body height decreased [Unknown]
